FAERS Safety Report 5366251-7 (Version None)
Quarter: 2007Q2

REPORT INFORMATION
  Report Type: 
  Country: None (occurrence: None)
  Receive Date: 20070619
  Receipt Date: 20070619
  Transmission Date: 20071010
  Serious: Yes (Hospitalization)
  Sender: FDA-Public Use
  Company Number: None

PATIENT
  Sex: Female
  Weight: 64.8 kg

DRUGS (8)
  1. GAMUNEX [Suspect]
     Indication: MYASTHENIA GRAVIS
     Dosage: 600 MG/KG QD X 2 Q 3 MONTHS IV 4-6 HOURS
     Route: 042
     Dates: start: 20070608, end: 20070608
  2. GAMUNEX [Suspect]
  3. DEXT/WATER [Concomitant]
  4. EPIPEN [Concomitant]
  5. DIPHENHYDRAMINE HCL [Concomitant]
  6. SODIUM CHLORIDE SOLUTION [Concomitant]
  7. HEPARIN PF [Concomitant]
  8. SODIUM CHLORIDE 0.9% [Concomitant]

REACTIONS (6)
  - ASTHENIA [None]
  - BODY TEMPERATURE INCREASED [None]
  - CHILLS [None]
  - PAIN [None]
  - PHARMACEUTICAL PRODUCT COMPLAINT [None]
  - TREMOR [None]
